FAERS Safety Report 4945389-X (Version None)
Quarter: 2006Q1

REPORT INFORMATION
  Report Type: 
  Country: None (occurrence: None)
  Receive Date: 20060315
  Receipt Date: 20060315
  Transmission Date: 20060701
  Serious: No
  Sender: FDA-Public Use
  Company Number: None

PATIENT
  Age: 66 Year
  Sex: Male
  Weight: 106.1417 kg

DRUGS (4)
  1. WARFARIN SODIUM [Suspect]
     Indication: DEEP VEIN THROMBOSIS
     Dosage: 10 MG QD
     Dates: start: 20051012, end: 20051013
  2. WARFARIN SODIUM [Suspect]
     Indication: PULMONARY EMBOLISM
     Dosage: 10 MG QD
     Dates: start: 20051012, end: 20051013
  3. WARFARIN SODIUM [Suspect]
     Indication: THROMBOSIS PROPHYLAXIS
     Dosage: 10 MG QD
     Dates: start: 20051012, end: 20051013
  4. ENOXAPARIN 100 MG/ML  #20/10D [Suspect]
     Indication: THROMBOSIS PROPHYLAXIS
     Dosage: 100 MG/ML BID
     Dates: start: 20051012, end: 20051111

REACTIONS (13)
  - ASTHENIA [None]
  - CHEST DISCOMFORT [None]
  - DIVERTICULUM [None]
  - DIZZINESS [None]
  - DRUG INTERACTION [None]
  - GASTROINTESTINAL DISORDER [None]
  - GASTROINTESTINAL NECROSIS [None]
  - HAEMORRHOIDS [None]
  - LARGE INTESTINAL ULCER HAEMORRHAGE [None]
  - NAUSEA [None]
  - ORAL INTAKE REDUCED [None]
  - RED BLOOD CELL COUNT DECREASED [None]
  - THROMBOSIS [None]
